FAERS Safety Report 13610605 (Version 2)
Quarter: 2017Q2

REPORT INFORMATION
  Report Type: Spontaneous
  Country: US (occurrence: US)
  Receive Date: 20170605
  Receipt Date: 20170620
  Transmission Date: 20170830
  Serious: Yes (Other)
  Sender: FDA-Public Use
  Company Number: PHEH2017US016749

PATIENT
  Age: 34 Year
  Sex: Male
  Weight: 109 kg

DRUGS (4)
  1. GILENYA [Suspect]
     Active Substance: FINGOLIMOD HYDROCHLORIDE
     Indication: MULTIPLE SCLEROSIS
     Dosage: 0.5 MG, QD
     Route: 048
     Dates: start: 20161130
  2. PROPOFOL. [Concomitant]
     Active Substance: PROPOFOL
     Indication: SEDATION
     Route: 042
  3. NUVIGIL [Concomitant]
     Active Substance: ARMODAFINIL
     Indication: PRODUCT USED FOR UNKNOWN INDICATION
     Dosage: 1 DF, QD
     Route: 048
  4. SILDENAFIL. [Concomitant]
     Active Substance: SILDENAFIL
     Indication: PRODUCT USED FOR UNKNOWN INDICATION
     Dosage: 2-5 DF, 1 HR PRIOR TO SEXUAL ACTIVITY
     Route: 048

REACTIONS (15)
  - Monocyte percentage increased [Unknown]
  - Lymphocyte count decreased [Unknown]
  - Tachypnoea [Unknown]
  - Atrial fibrillation [Recovered/Resolved]
  - Tachycardia [Unknown]
  - Chest pain [Unknown]
  - Hyperhidrosis [Unknown]
  - Syncope [Unknown]
  - Blood chloride increased [Unknown]
  - Carbon dioxide abnormal [Unknown]
  - Blood glucose increased [Unknown]
  - Dizziness [Unknown]
  - Hypertension [Unknown]
  - Dyspnoea [Unknown]
  - Palpitations [Unknown]

NARRATIVE: CASE EVENT DATE: 20170531
